FAERS Safety Report 4913840-7 (Version None)
Quarter: 2006Q1

REPORT INFORMATION
  Report Type: 
  Country: None (occurrence: None)
  Receive Date: 20060216
  Receipt Date: 20050923
  Transmission Date: 20060701
  Serious: Yes (Hospitalization, Disabling)
  Sender: FDA-Public Use
  Company Number: US-MERCK-0509USA03605

PATIENT
  Age: 49 Year
  Sex: Male

DRUGS (4)
  1. VIOXX [Suspect]
     Route: 048
     Dates: start: 20020517
  2. VIOXX [Suspect]
     Route: 048
     Dates: start: 20020613
  3. VIOXX [Suspect]
     Route: 048
     Dates: start: 20020712
  4. VIOXX [Suspect]
     Route: 048
     Dates: end: 20040901

REACTIONS (11)
  - ACCIDENT AT WORK [None]
  - ADJUSTMENT DISORDER [None]
  - BACK INJURY [None]
  - BREAST DISCHARGE [None]
  - CARDIOMEGALY [None]
  - CORONARY ARTERY STENOSIS [None]
  - DEPRESSION [None]
  - LIMB INJURY [None]
  - MYOCARDIAL INFARCTION [None]
  - PAIN [None]
  - PULMONARY OEDEMA [None]
